FAERS Safety Report 4320006-0 (Version None)
Quarter: 2004Q1

REPORT INFORMATION
  Report Type: 
  Country: None (occurrence: None)
  Receive Date: 20040317
  Receipt Date: 20040309
  Transmission Date: 20041129
  Serious: Yes (Death)
  Sender: FDA-Public Use
  Company Number: US-JNJFOC-20040203245

PATIENT
  Age: 86 Year
  Sex: Male

DRUGS (1)
  1. RISPERDAL [Suspect]

REACTIONS (1)
  - CARDIOPULMONARY FAILURE [None]
